FAERS Safety Report 21065485 (Version 1)
Quarter: 2022Q3

REPORT INFORMATION
  Report Type: Spontaneous
  Country: US (occurrence: None)
  Receive Date: 20220711
  Receipt Date: 20220711
  Transmission Date: 20221026
  Serious: Yes (Death)
  Sender: FDA-Public Use
  Company Number: None

PATIENT
  Age: 71 Year
  Sex: Male

DRUGS (2)
  1. OTEZLA [Suspect]
     Active Substance: APREMILAST
     Indication: Psoriasis
     Dosage: TAKE 1 TABLET BY MOUTH TWICE  AS DIRECTED
     Route: 048
     Dates: start: 202203
  2. OTEZLA [Suspect]
     Active Substance: APREMILAST
     Indication: Psoriatic arthropathy

REACTIONS (1)
  - Death [None]
